FAERS Safety Report 24754665 (Version 1)
Quarter: 2024Q4

REPORT INFORMATION
  Report Type: Spontaneous
  Country: US (occurrence: US)
  Receive Date: 20241219
  Receipt Date: 20241219
  Transmission Date: 20250115
  Serious: No
  Sender: INCYTE
  Company Number: US-INCYTE CORPORATION-2024IN012935

PATIENT

DRUGS (1)
  1. JAKAFI [Suspect]
     Active Substance: RUXOLITINIB
     Indication: Aplastic anaemia
     Dosage: 10 MILLIGRAM, BID
     Route: 048

REACTIONS (2)
  - Stomatitis [Unknown]
  - Off label use [Unknown]
